FAERS Safety Report 25941955 (Version 1)
Quarter: 2025Q4

REPORT INFORMATION
  Report Type: Spontaneous
  Country: US (occurrence: None)
  Receive Date: 20251017
  Receipt Date: 20251017
  Transmission Date: 20260118
  Serious: Yes (Hospitalization)
  Sender: FDA-CTU
  Company Number: None

PATIENT
  Age: 31 Year
  Sex: Male
  Weight: 99.8 kg

DRUGS (1)
  1. SKYRIZI [Suspect]
     Active Substance: RISANKIZUMAB-RZAA
     Indication: Psoriasis
     Dosage: 150 MG EVERY 28 DAYS  SUBCUTANEOUS
     Route: 058
     Dates: start: 20250910, end: 20251008

REACTIONS (13)
  - Headache [None]
  - Nausea [None]
  - Chest discomfort [None]
  - Dyspnoea exertional [None]
  - Palpitations [None]
  - Muscular weakness [None]
  - Pain in extremity [None]
  - Respiration abnormal [None]
  - Cold sweat [None]
  - Chest pain [None]
  - Fatigue [None]
  - Brain fog [None]
  - Drug hypersensitivity [None]

NARRATIVE: CASE EVENT DATE: 20251009
